FAERS Safety Report 19903061 (Version 2)
Quarter: 2021Q4

REPORT INFORMATION
  Report Type: Spontaneous
  Country: ES (occurrence: ES)
  Receive Date: 20211001
  Receipt Date: 20211028
  Transmission Date: 20220303
  Serious: Yes (Hospitalization, Other)
  Sender: FDA-Public Use
  Company Number: ES-NOVOPROD-849719

PATIENT
  Age: 66 Year
  Sex: Female

DRUGS (5)
  1. OZEMPIC [Suspect]
     Active Substance: SEMAGLUTIDE
     Indication: Diabetes mellitus
     Dosage: 0.25 MG QW ( TWO DOSES, ONE PER WEEK)
     Route: 065
     Dates: start: 20210802
  2. OZEMPIC [Suspect]
     Active Substance: SEMAGLUTIDE
     Dosage: UNK
     Route: 065
     Dates: start: 20210802, end: 20210809
  3. EMPAGLIFLOZIN [Concomitant]
     Active Substance: EMPAGLIFLOZIN
     Indication: Diabetes mellitus
     Dosage: UNK
     Route: 065
  4. OMEPRAZOLE [Concomitant]
     Active Substance: OMEPRAZOLE
     Indication: Product used for unknown indication
     Dosage: UNK
     Route: 065
  5. OLMESARTAN [Concomitant]
     Active Substance: OLMESARTAN
     Indication: Hypertension
     Route: 065

REACTIONS (4)
  - Renal failure [Recovered/Resolved]
  - Pulmonary oedema [Recovered/Resolved]
  - Pancreatitis acute [Recovered/Resolved]
  - Hepatitis viral [Unknown]

NARRATIVE: CASE EVENT DATE: 20210809
